FAERS Safety Report 13013764 (Version 16)
Quarter: 2018Q1

REPORT INFORMATION
  Report Type: Report from Study
  Country: CA (occurrence: CA)
  Receive Date: 20161209
  Receipt Date: 20180207
  Transmission Date: 20180508
  Serious: Yes (Hospitalization, Other)
  Sender: FDA-Public Use
  Company Number: CA-TAKEDA-2016TUS022110

PATIENT
  Age: 76 Year
  Sex: Female

DRUGS (24)
  1. APO OXAZEPAM [Concomitant]
     Dosage: UNK, QD
     Dates: start: 20160622, end: 20170329
  2. CALCIUM [Concomitant]
     Active Substance: CALCIUM
     Dosage: UNK
  3. RISEDRONATE TEVA [Concomitant]
     Active Substance: RISEDRONATE SODIUM
     Dosage: UNK
  4. PENTASA [Concomitant]
     Active Substance: MESALAMINE
     Dosage: UNK, BID
     Dates: start: 20160628, end: 20170329
  5. PERIDOL                            /00027401/ [Concomitant]
     Dosage: UNK
  6. PREDNISONE. [Concomitant]
     Active Substance: PREDNISONE
     Dosage: UNK
  7. PMS FERROUS SULFATE [Concomitant]
     Dosage: UNK, QD
     Dates: start: 20160622, end: 20170329
  8. PMS RISEDRONATE [Concomitant]
     Dosage: UNK, 1/WEEK
     Dates: start: 20160628, end: 20170329
  9. VEDOLIZUMAB [Suspect]
     Active Substance: VEDOLIZUMAB
     Dosage: 300 MG, Q4WEEKS
     Route: 042
     Dates: start: 20170704, end: 20171218
  10. RIVA K 20 SR [Concomitant]
     Dosage: UNK, BID
     Dates: start: 20160622, end: 20170329
  11. PANTOPRAZOLE TEVA [Concomitant]
     Active Substance: PANTOPRAZOLE SODIUM
     Dosage: UNK, QD
     Dates: start: 20160622, end: 20170329
  12. AERUS [Concomitant]
     Indication: PREMEDICATION
     Dosage: UNK
  13. NOVO-PERIDOL [Concomitant]
     Active Substance: HALOPERIDOL
     Dosage: UNK UNK, QD
     Dates: start: 20160622, end: 20170329
  14. VEDOLIZUMAB [Suspect]
     Active Substance: VEDOLIZUMAB
     Indication: CROHN^S DISEASE
     Dosage: 300 MG, UNK
     Route: 042
     Dates: start: 20161026
  15. APO METOPROLOL [Concomitant]
     Dosage: UNK
  16. VITAMIN B12 [Concomitant]
     Active Substance: CYANOCOBALAMIN
     Dosage: UNK, QD
     Dates: start: 20160628, end: 20170329
  17. SALBUTAMOL TEVA [Concomitant]
     Active Substance: ALBUTEROL
     Dosage: UNK, QID
     Dates: start: 20160106, end: 20170325
  18. WARFARINE [Concomitant]
     Active Substance: WARFARIN
     Dosage: UNK
     Dates: start: 20161114, end: 20170329
  19. CLOZARIL [Concomitant]
     Active Substance: CLOZAPINE
     Dosage: UNK, BID
     Dates: start: 20160622, end: 20170329
  20. SOLIFENACIN TEVA [Concomitant]
     Dosage: UNK, QD
     Dates: start: 20160628, end: 20170329
  21. SYNTHROID [Concomitant]
     Active Substance: LEVOTHYROXINE SODIUM
     Dosage: UNK, QD
     Dates: start: 20160628, end: 20170329
  22. D-TABS [Concomitant]
     Active Substance: CHOLECALCIFEROL
     Dosage: UNK UNK, 1/WEEK
     Dates: start: 20160628, end: 20170329
  23. ASMANEX [Concomitant]
     Active Substance: MOMETASONE FUROATE
     Dosage: UNK, QD
     Dates: start: 20160628, end: 20161227
  24. DOCUSATE SODIUM. [Concomitant]
     Active Substance: DOCUSATE SODIUM
     Dosage: UNK, BID
     Dates: start: 20161017, end: 20170329

REACTIONS (11)
  - Lung infection [Recovered/Resolved]
  - Upper limb fracture [Unknown]
  - Condition aggravated [Not Recovered/Not Resolved]
  - Pulmonary fibrosis [Not Recovered/Not Resolved]
  - Fall [Unknown]
  - Hypotension [Not Recovered/Not Resolved]
  - Foot fracture [Unknown]
  - Sternal fracture [Unknown]
  - Pneumonia [Unknown]
  - Asthenia [Unknown]
  - Off label use [Unknown]

NARRATIVE: CASE EVENT DATE: 201612
